FAERS Safety Report 20143087 (Version 1)
Quarter: 2021Q4

REPORT INFORMATION
  Report Type: Spontaneous
  Country: TH (occurrence: TH)
  Receive Date: 20211202
  Receipt Date: 20211202
  Transmission Date: 20220303
  Serious: Yes (Life-Threatening, Hospitalization)
  Sender: FDA-Public Use
  Company Number: TH-STRIDES ARCOLAB LIMITED-2021SP030502

PATIENT
  Age: 20 Year
  Sex: Female

DRUGS (10)
  1. CYPROHEPTADINE [Suspect]
     Active Substance: CYPROHEPTADINE
     Indication: Serotonin syndrome
     Dosage: 12 MILLIGRAM, LOADING DOSE
     Route: 048
  2. CYPROHEPTADINE [Suspect]
     Active Substance: CYPROHEPTADINE
     Dosage: 2 MILLIGRAM FOR 24 HOURS
     Route: 048
  3. LURASIDONE [Suspect]
     Active Substance: LURASIDONE
     Indication: Major depression
     Dosage: UNK
     Route: 065
  4. BUPROPION [Suspect]
     Active Substance: BUPROPION
     Indication: Major depression
     Dosage: UNK
     Route: 065
  5. LAMOTRIGINE [Concomitant]
     Active Substance: LAMOTRIGINE
     Indication: Major depression
     Dosage: UNK
     Route: 048
  6. DIAZEPAM [Concomitant]
     Active Substance: DIAZEPAM
     Indication: Myoclonus
     Dosage: 40 MILLIGRAM PER DAY
     Route: 042
  7. MIDAZOLAM [Concomitant]
     Active Substance: MIDAZOLAM
     Indication: Myoclonus
     Dosage: 4-6 MILLIGRAM PER HOUR
     Route: 042
  8. PROPOFOL [Concomitant]
     Active Substance: PROPOFOL
     Indication: Myoclonus
     Dosage: 20-30 MILLIGRAM PER HOUR
     Route: 042
  9. VORTIOXETINE [Interacting]
     Active Substance: VORTIOXETINE
     Indication: Major depression
     Dosage: UNK
     Route: 065
  10. ESCITALOPRAM [Concomitant]
     Active Substance: ESCITALOPRAM OXALATE
     Indication: Major depression
     Dosage: UNK
     Route: 048

REACTIONS (2)
  - Encephalopathy [Recovered/Resolved]
  - Off label use [Unknown]
